FAERS Safety Report 4585337-8 (Version None)
Quarter: 2005Q1

REPORT INFORMATION
  Report Type: 
  Country: None (occurrence: None)
  Receive Date: 20050214
  Receipt Date: 20050201
  Transmission Date: 20050727
  Serious: Yes (Other)
  Sender: FDA-Public Use
  Company Number: 2005024395

PATIENT
  Age: 25 Year
  Sex: Female
  Weight: 64.8644 kg

DRUGS (5)
  1. NEURONTIN [Suspect]
     Indication: NERVE INJURY
     Dosage: 1800 MG (600 MCG, 3 IN 1 D), ORAL
     Route: 048
     Dates: start: 20040209
  2. GLUCOSAMINE W/CHONDROITIN SULFATES (ASCORBIC ACID, CHONDROITIN SULFATE [Suspect]
     Indication: ILL-DEFINED DISORDER
     Dates: end: 20050101
  3. IBUPROFEN [Concomitant]
  4. PARACETAMOL [Concomitant]
  5. PROPACET (DEXTROPROPOXYPHENE NAPSYLATE, PARACETAMOL) [Concomitant]

REACTIONS (5)
  - DISORIENTATION [None]
  - DRUG INTERACTION [None]
  - HIP SURGERY [None]
  - NERVE INJURY [None]
  - SUICIDAL IDEATION [None]
